FAERS Safety Report 12935076 (Version 2)
Quarter: 2016Q4

REPORT INFORMATION
  Report Type: Spontaneous
  Country: US (occurrence: US)
  Receive Date: 20161113
  Receipt Date: 20161211
  Transmission Date: 20170207
  Serious: No
  Sender: FDA-Public Use
  Company Number: US-TAIHO ONCOLOGY INC-EU-2016-02913

PATIENT
  Age: 73 Year
  Sex: Male

DRUGS (7)
  1. METOPROLOL. [Concomitant]
     Active Substance: METOPROLOL
  2. THIAMINE. [Concomitant]
     Active Substance: THIAMINE
  3. OXYCODONE [Concomitant]
     Active Substance: OXYCODONE
  4. LONSURF [Suspect]
     Active Substance: TIPIRACIL HYDROCHLORIDE\TRIFLURIDINE
     Indication: LYMPHOMA
     Route: 048
     Dates: start: 20161006
  5. IRON [Concomitant]
     Active Substance: IRON
  6. LONSURF [Suspect]
     Active Substance: TIPIRACIL HYDROCHLORIDE\TRIFLURIDINE
     Indication: METASTASES TO LYMPH NODES
  7. WARFARIN [Concomitant]
     Active Substance: WARFARIN

REACTIONS (3)
  - Fatigue [Unknown]
  - Off label use [Unknown]
  - Nausea [Unknown]

NARRATIVE: CASE EVENT DATE: 201610
